FAERS Safety Report 11934597 (Version 1)
Quarter: 2016Q1

REPORT INFORMATION
  Report Type: Spontaneous
  Country: CA (occurrence: CA)
  Receive Date: 20160121
  Receipt Date: 20160121
  Transmission Date: 20160526
  Serious: Yes (Death)
  Sender: FDA-Public Use
  Company Number: CA-TEVA-627223ACC

PATIENT
  Age: 24 Year
  Sex: Male
  Weight: 74 kg

DRUGS (9)
  1. MIRTAZAPINE. [Concomitant]
     Active Substance: MIRTAZAPINE
  2. RATIO-LENOLTEC NO 2 [Concomitant]
  3. BACLOFEN. [Suspect]
     Active Substance: BACLOFEN
     Route: 065
  4. ALPRAZOLAM. [Concomitant]
     Active Substance: ALPRAZOLAM
  5. BENZOYLECGONINE [Suspect]
     Active Substance: BENZOYLECGONINE
     Route: 065
  6. CALCIUM [Concomitant]
     Active Substance: CALCIUM
  7. REPLAVITE [Concomitant]
  8. DIPHENHYDRAMINE. [Suspect]
     Active Substance: DIPHENHYDRAMINE
     Route: 065
  9. ACETAMINOPHEN. [Concomitant]
     Active Substance: ACETAMINOPHEN

REACTIONS (2)
  - Drug level above therapeutic [Fatal]
  - Toxicity to various agents [Fatal]
